FAERS Safety Report 10227437 (Version 4)
Quarter: 2016Q1

REPORT INFORMATION
  Report Type: Spontaneous
  Country: US (occurrence: US)
  Receive Date: 20140610
  Receipt Date: 20160120
  Transmission Date: 20160525
  Serious: Yes (Other)
  Sender: FDA-Public Use
  Company Number: US-PFIZER INC-2014158569

PATIENT
  Age: 64 Year
  Sex: Male
  Weight: 113.4 kg

DRUGS (2)
  1. EFFEXOR [Suspect]
     Active Substance: VENLAFAXINE HYDROCHLORIDE
     Indication: DEPRESSION
     Dosage: 75 MG, 2X/DAY
     Route: 048
  2. INTERFERON [Concomitant]
     Active Substance: INTERFERON
     Dosage: UNK

REACTIONS (7)
  - Bipolar disorder [Unknown]
  - Hallucination, auditory [Unknown]
  - Withdrawal syndrome [Unknown]
  - Mania [Unknown]
  - Vertigo [Unknown]
  - Malaise [Unknown]
  - Stress [Unknown]
